FAERS Safety Report 18728813 (Version 1)
Quarter: 2021Q1

REPORT INFORMATION
  Report Type: Spontaneous
  Country: FR (occurrence: FR)
  Receive Date: 20210112
  Receipt Date: 20210112
  Transmission Date: 20210419
  Serious: Yes (Other)
  Sender: FDA-Public Use
  Company Number: FR-GLAXOSMITHKLINE-FR2021000687

PATIENT
  Age: 28 Year
  Sex: Female
  Weight: 53 kg

DRUGS (2)
  1. ALMOTRIPTAN. [Concomitant]
     Active Substance: ALMOTRIPTAN
     Indication: PRODUCT USED FOR UNKNOWN INDICATION
     Dosage: UNK
     Route: 048
  2. LAMICTAL [Suspect]
     Active Substance: LAMOTRIGINE
     Indication: BIPOLAR DISORDER
     Dosage: 275 MG, QD
     Route: 048

REACTIONS (5)
  - Visual impairment [Recovered/Resolved]
  - Loss of consciousness [Recovered/Resolved]
  - Muscle contractions involuntary [Recovering/Resolving]
  - Feeling cold [Recovered/Resolved]
  - Vertigo [Recovered/Resolved]

NARRATIVE: CASE EVENT DATE: 20201215
